FAERS Safety Report 14543088 (Version 2)
Quarter: 2018Q1

REPORT INFORMATION
  Report Type: Spontaneous
  Country: US (occurrence: US)
  Receive Date: 20180216
  Receipt Date: 20180305
  Transmission Date: 20180509
  Serious: Yes (Other)
  Sender: FDA-Public Use
  Company Number: US-ALLERGAN-1807374US

PATIENT
  Age: 86 Year
  Sex: Female

DRUGS (4)
  1. REGADENOSON [Concomitant]
     Active Substance: REGADENOSON
     Indication: PRODUCT USED FOR UNKNOWN INDICATION
     Dosage: 0.4 MG, UNK
     Route: 042
  2. TECHNETIUM TC 99M TETROFOSMIN [Concomitant]
     Dosage: 30 MCI, UNK
     Route: 065
  3. NITROGLYCERIN UNK [Suspect]
     Active Substance: NITROGLYCERIN
     Indication: VASODILATATION
     Dosage: UNK
     Route: 060
  4. TECHNETIUM TC 99M TETROFOSMIN [Concomitant]
     Indication: PRODUCT USED FOR UNKNOWN INDICATION
     Dosage: 11 MCI, UNK
     Route: 065

REACTIONS (5)
  - Lethargy [Recovered/Resolved]
  - Ischaemia [Recovered/Resolved]
  - Hypotension [Recovered/Resolved]
  - Dilatation ventricular [Recovered/Resolved]
  - Mental status changes [Recovered/Resolved]
